FAERS Safety Report 11920586 (Version 1)
Quarter: 2016Q1

REPORT INFORMATION
  Report Type: Spontaneous
  Country: US (occurrence: US)
  Receive Date: 20160115
  Receipt Date: 20160115
  Transmission Date: 20160526
  Serious: No
  Sender: FDA-Public Use
  Company Number: US-ASTELLAS-2015US027171

PATIENT
  Age: 85 Year
  Sex: Female

DRUGS (2)
  1. SIMVASTATIN. [Concomitant]
     Active Substance: SIMVASTATIN
     Indication: PRODUCT USED FOR UNKNOWN INDICATION
     Dosage: UNK UNK, UNKNOWN FREQ.
     Route: 065
  2. MYRBETRIQ [Suspect]
     Active Substance: MIRABEGRON
     Indication: URINARY INCONTINENCE
     Route: 065
     Dates: start: 20150410, end: 20150720

REACTIONS (6)
  - Urinary incontinence [Recovered/Resolved]
  - Product quality issue [Unknown]
  - Oropharyngeal pain [Recovered/Resolved]
  - Nocturia [Recovered/Resolved]
  - Drug ineffective [Unknown]
  - Intentional product use issue [Unknown]

NARRATIVE: CASE EVENT DATE: 20150718
